FAERS Safety Report 22209538 (Version 3)
Quarter: 2024Q3

REPORT INFORMATION
  Report Type: Spontaneous
  Country: US (occurrence: US)
  Receive Date: 20230414
  Receipt Date: 20240912
  Transmission Date: 20241017
  Serious: No
  Sender: SANOFI AVENTIS
  Company Number: US-SA-SAC20230412000572

PATIENT
  Sex: Male
  Weight: 94.3 kg

DRUGS (1)
  1. DUPIXENT [Suspect]
     Active Substance: DUPILUMAB
     Indication: Dermatitis atopic
     Dosage: 300 MG, QOW
     Route: 058

REACTIONS (4)
  - Pain [Unknown]
  - Rash macular [Unknown]
  - Therapeutic response shortened [Unknown]
  - Dermatitis atopic [Not Recovered/Not Resolved]
